FAERS Safety Report 11201176 (Version 12)
Quarter: 2016Q1

REPORT INFORMATION
  Report Type: Report from Study
  Country: CA (occurrence: CA)
  Receive Date: 20150619
  Receipt Date: 20160309
  Transmission Date: 20160525
  Serious: Yes (Other)
  Sender: FDA-Public Use
  Company Number: CA-ROCHE-1151665

PATIENT
  Age: 67 Year
  Sex: Male
  Weight: 93 kg

DRUGS (29)
  1. ESOMEPRAZOLE [Concomitant]
     Active Substance: ESOMEPRAZOLE
  2. RIVASA [Concomitant]
     Active Substance: ASPIRIN
  3. ACTEMRA [Suspect]
     Active Substance: TOCILIZUMAB
     Route: 042
     Dates: start: 20150619
  4. SEREVENT DISKUS [Concomitant]
     Active Substance: SALMETEROL XINAFOATE
  5. VOLTAREN [Concomitant]
     Active Substance: DICLOFENAC SODIUM
  6. SOLU-MEDROL [Concomitant]
     Active Substance: METHYLPREDNISOLONE SODIUM SUCCINATE
     Indication: PREMEDICATION
     Route: 042
     Dates: start: 20150129
  7. HUMALOG [Concomitant]
     Active Substance: INSULIN LISPRO
  8. NASONEX [Concomitant]
     Active Substance: MOMETASONE FUROATE
  9. BENADRYL [Concomitant]
     Active Substance: DIPHENHYDRAMINE HYDROCHLORIDE
     Indication: PREMEDICATION
     Route: 048
     Dates: start: 20150129
  10. ACTEMRA [Suspect]
     Active Substance: TOCILIZUMAB
     Route: 042
     Dates: start: 20121120
  11. ACTEMRA [Suspect]
     Active Substance: TOCILIZUMAB
     Route: 042
     Dates: start: 20140926
  12. FLOVENT [Concomitant]
     Active Substance: FLUTICASONE PROPIONATE
  13. DOCUSATE [Concomitant]
     Active Substance: DOCUSATE
  14. RITUXAN [Suspect]
     Active Substance: RITUXIMAB
     Indication: RHEUMATOID ARTHRITIS
     Route: 042
     Dates: start: 20150129, end: 20150212
  15. RIVA-SENNA [Concomitant]
  16. CALCITE [Concomitant]
     Active Substance: CALCIUM CARBONATE
  17. LANTUS [Concomitant]
     Active Substance: INSULIN GLARGINE
  18. LYRICA [Concomitant]
     Active Substance: PREGABALIN
  19. ACTEMRA [Suspect]
     Active Substance: TOCILIZUMAB
     Indication: RHEUMATOID ARTHRITIS
     Route: 042
     Dates: start: 20121025
  20. SYNTHROID [Concomitant]
     Active Substance: LEVOTHYROXINE SODIUM
  21. TYLENOL [Concomitant]
     Active Substance: ACETAMINOPHEN
     Route: 048
     Dates: start: 20150129
  22. VENTOLIN [Concomitant]
     Active Substance: ALBUTEROL SULFATE
  23. ACTEMRA [Suspect]
     Active Substance: TOCILIZUMAB
     Route: 042
     Dates: start: 20140115
  24. VENLAFAXINE [Concomitant]
     Active Substance: VENLAFAXINE HYDROCHLORIDE
  25. ACTEMRA [Suspect]
     Active Substance: TOCILIZUMAB
     Route: 042
     Dates: start: 20130605
  26. PREDNISONE. [Concomitant]
     Active Substance: PREDNISONE
  27. RISEDRONATE [Concomitant]
     Active Substance: RISEDRONATE SODIUM
  28. METFORMIN [Concomitant]
     Active Substance: METFORMIN HYDROCHLORIDE
  29. AZATHIOPRINE. [Concomitant]
     Active Substance: AZATHIOPRINE

REACTIONS (46)
  - Osteoporosis [Unknown]
  - Oropharyngeal pain [Recovered/Resolved]
  - Restless legs syndrome [Recovered/Resolved]
  - Acne [Recovered/Resolved]
  - Swollen tongue [Unknown]
  - Fall [Unknown]
  - Fatigue [Not Recovered/Not Resolved]
  - Dyspnoea exertional [Not Recovered/Not Resolved]
  - Blood pressure fluctuation [Not Recovered/Not Resolved]
  - Dyspnoea [Unknown]
  - Joint swelling [Recovering/Resolving]
  - Haematoma [Recovering/Resolving]
  - Weight increased [Not Recovered/Not Resolved]
  - Infection [Not Recovered/Not Resolved]
  - Dental caries [Unknown]
  - Dyspnoea exertional [Not Recovered/Not Resolved]
  - Nausea [Recovered/Resolved]
  - Gastroenteritis [Recovered/Resolved]
  - Pubic pain [Not Recovered/Not Resolved]
  - Drug hypersensitivity [Recovered/Resolved]
  - Pulmonary fibrosis [Not Recovered/Not Resolved]
  - Blood glucose increased [Recovering/Resolving]
  - Blood pressure increased [Unknown]
  - Infusion related reaction [Unknown]
  - Respiratory disorder [Not Recovered/Not Resolved]
  - Headache [Recovered/Resolved]
  - Joint stiffness [Recovered/Resolved]
  - Oxygen saturation decreased [Unknown]
  - Rheumatoid arthritis [Recovered/Resolved]
  - Arthralgia [Recovering/Resolving]
  - Blood pressure systolic decreased [Not Recovered/Not Resolved]
  - Gait disturbance [Recovered/Resolved]
  - Nodule [Not Recovered/Not Resolved]
  - Joint range of motion decreased [Unknown]
  - Tongue dry [Unknown]
  - Labile blood pressure [Unknown]
  - Musculoskeletal pain [Unknown]
  - Loose tooth [Not Recovered/Not Resolved]
  - Oxygen saturation decreased [Unknown]
  - Blood pressure increased [Unknown]
  - Fracture [Unknown]
  - Hypoglycaemia [Unknown]
  - Blood pressure systolic increased [Recovered/Resolved]
  - Respiratory rate increased [Unknown]
  - Laceration [Recovering/Resolving]
  - Heart rate decreased [Unknown]

NARRATIVE: CASE EVENT DATE: 20121026
